FAERS Safety Report 16282603 (Version 1)
Quarter: 2019Q2

REPORT INFORMATION
  Report Type: Spontaneous
  Country: ES (occurrence: ES)
  Receive Date: 20190507
  Receipt Date: 20190507
  Transmission Date: 20190711
  Serious: Yes (Hospitalization, Other)
  Sender: FDA-Public Use
  Company Number: ES-BAXTER-2019BAX009007

PATIENT
  Age: 75 Year
  Sex: Male
  Weight: 74 kg

DRUGS (3)
  1. PHYSIONEAL 35 GLUCOSA 2,27% P/V/22,7 MG/ML. CLEAR-FLEX SOLUCI?N PARA D [Suspect]
     Active Substance: CALCIUM CHLORIDE\DEXTROSE\MAGNESIUM CHLORIDE\SODIUM CHLORIDE
     Indication: PERITONEAL DIALYSIS
     Dosage: 2 BAGS PER DAY
     Route: 033
  2. EXTRANEAL [Suspect]
     Active Substance: CALCIUM CHLORIDE\ICODEXTRIN\MAGNESIUM CHLORIDE\SODIUM CHLORIDE\SODIUM LACTATE
     Indication: PERITONEAL DIALYSIS
     Dosage: 1 BAG PER DAY
     Route: 033
  3. PHYSIONEAL 35 GLUCOSA 2,27% P/V/22,7 MG/ML. SOL.DIAL.PER. [Suspect]
     Active Substance: CALCIUM CL\DEXTROSE\MAGNESIUM CL\SODIUM BICAR\SODIUM CL\SODIUM LACT
     Indication: PERITONEAL DIALYSIS
     Dosage: 1 BAG PER DAY
     Route: 033

REACTIONS (2)
  - Oxygen saturation decreased [Recovering/Resolving]
  - Peritonitis bacterial [Recovering/Resolving]

NARRATIVE: CASE EVENT DATE: 20190423
